FAERS Safety Report 6167457-X (Version None)
Quarter: 2009Q2

REPORT INFORMATION
  Report Type: 
  Country: None (occurrence: None)
  Receive Date: 20090424
  Receipt Date: 20090412
  Transmission Date: 20091009
  Serious: Yes (Other)
  Sender: FDA-Public Use
  Company Number: US-PFIZER INC-2009197666

PATIENT
  Sex: Female
  Weight: 49.887 kg

DRUGS (10)
  1. LYRICA [Suspect]
     Indication: HYPOAESTHESIA
     Dosage: 50 MG, 2X/DAY
     Route: 048
     Dates: start: 20090316
  2. DIAZEPAM [Concomitant]
     Indication: MUSCLE SPASMS
     Dosage: UNK
  3. DURAGESIC-100 [Concomitant]
     Dosage: UNK
  4. ALLERGY MEDICATION [Concomitant]
     Dosage: UNK
  5. TRAZODONE [Concomitant]
     Dosage: UNK
  6. LIPITOR [Concomitant]
     Dosage: UNK
  7. REQUIP [Concomitant]
     Dosage: UNK
  8. MINOCYCLINE [Concomitant]
     Dosage: UNK
  9. SYNTHROID [Concomitant]
     Dosage: 100 MCG
  10. DETROL LA [Concomitant]
     Dosage: UNK

REACTIONS (3)
  - ARTHRALGIA [None]
  - CARDIAC VALVE DISEASE [None]
  - MYALGIA [None]
